FAERS Safety Report 8577993-4 (Version None)
Quarter: 2012Q3

REPORT INFORMATION
  Report Type: 
  Country: None (occurrence: None)
  Receive Date: 20120725
  Receipt Date: 20120709
  Transmission Date: 20120928
  Serious: Yes (Other)
  Sender: FDA-Public Use
  Company Number: 2012MA008436

PATIENT
  Age: 64 Year
  Sex: Male

DRUGS (3)
  1. PACLITAXEL [Suspect]
     Indication: NON-SMALL CELL LUNG CANCER METASTATIC
     Dosage: 175 MG/M**2, Q3W; IV
     Route: 042
  2. CARBOPLATIN [Concomitant]
  3. BEVACIZUMAB [Concomitant]

REACTIONS (3)
  - CYSTOID MACULAR OEDEMA [None]
  - VISION BLURRED [None]
  - PHOTOSENSITIVITY REACTION [None]
